FAERS Safety Report 7202367-8 (Version None)
Quarter: 2010Q4

REPORT INFORMATION
  Report Type: 
  Country: None (occurrence: None)
  Receive Date: 20101229
  Receipt Date: 20101220
  Transmission Date: 20110411
  Serious: Yes (Other)
  Sender: FDA-Public Use
  Company Number: US-PFIZER INC-2010167039

PATIENT
  Sex: Male
  Weight: 143.78 kg

DRUGS (7)
  1. CHANTIX [Suspect]
     Indication: SMOKING CESSATION THERAPY
     Dosage: 0.5 MG, 1X/DAY
     Route: 048
     Dates: start: 20100222
  2. CHANTIX [Suspect]
     Dosage: 0.5 MG, 2X/DAY
     Dates: start: 20100101
  3. CHANTIX [Suspect]
     Dosage: 1 MG, 2X/DAY
  4. CHANTIX [Suspect]
     Dosage: UNK
     Dates: start: 20101101
  5. CHANTIX [Suspect]
     Dosage: 1 MG, UNK
     Dates: start: 20101115, end: 20101206
  6. ADDERALL 10 [Concomitant]
     Dosage: 10 MG, UNK
  7. NAPROXEN [Concomitant]
     Dosage: UNK, AS NEEDED

REACTIONS (4)
  - ANXIETY [None]
  - HALLUCINATION, AUDITORY [None]
  - INSOMNIA [None]
  - NIGHTMARE [None]
